FAERS Safety Report 7341859-8 (Version None)
Quarter: 2011Q1

REPORT INFORMATION
  Report Type: 
  Country: None (occurrence: None)
  Receive Date: 20110309
  Receipt Date: 20101228
  Transmission Date: 20110831
  Serious: Yes (Other)
  Sender: FDA-Public Use
  Company Number: US-CEPHALON-2010006628

PATIENT
  Sex: Female

DRUGS (1)
  1. FENTORA [Suspect]
     Indication: PROCEDURAL PAIN
     Route: 002

REACTIONS (2)
  - CIRCUMSTANCE OR INFORMATION CAPABLE OF LEADING TO MEDICATION ERROR [None]
  - DRUG PRESCRIBING ERROR [None]
